FAERS Safety Report 4313269-9 (Version None)
Quarter: 2004Q1

REPORT INFORMATION
  Report Type: 
  Country: None (occurrence: None)
  Receive Date: 20040305
  Receipt Date: 20040216
  Transmission Date: 20041129
  Serious: Yes (Death, Hospitalization, Other)
  Sender: FDA-Public Use
  Company Number: A-CH2003-03760

PATIENT
  Age: 57 Year
  Sex: Female

DRUGS (11)
  1. TRACLEER [Suspect]
     Indication: PULMONARY HYPERTENSION
     Dosage: 62.5 MG, OD, ORAL
     Route: 048
     Dates: start: 20030710, end: 20030908
  2. ILOMEDIN (ILOPROST) [Concomitant]
  3. DIGITOXIN TAB [Concomitant]
  4. AMARYL [Concomitant]
  5. ACIMETHIN (METHIONINE) [Concomitant]
  6. FALITHROM (PHENPROCOUMON) [Concomitant]
  7. ACERBON              (LISINOPRIL) [Concomitant]
  8. LEVOTHYROXINE SODIUM [Concomitant]
  9. CHLOROQUINE PHOSPHATE [Concomitant]
  10. ALDACTONE [Concomitant]
  11. LASIX [Concomitant]

REACTIONS (15)
  - BRAIN OEDEMA [None]
  - CARDIO-RESPIRATORY ARREST [None]
  - CONDITION AGGRAVATED [None]
  - DUODENAL ULCER PERFORATION [None]
  - GASTRITIS EROSIVE [None]
  - GASTROINTESTINAL DISORDER [None]
  - GENERALISED OEDEMA [None]
  - HAEMATEMESIS [None]
  - HEPATIC FAILURE [None]
  - MULTI-ORGAN FAILURE [None]
  - PORPHYRIA NON-ACUTE [None]
  - PROTHROMBIN TIME RATIO DECREASED [None]
  - PYREXIA [None]
  - RECTAL ULCER HAEMORRHAGE [None]
  - RIGHT VENTRICULAR FAILURE [None]
